FAERS Safety Report 12771373 (Version 1)
Quarter: 2016Q3

REPORT INFORMATION
  Report Type: Spontaneous
  Country: US (occurrence: US)
  Receive Date: 20160922
  Receipt Date: 20160922
  Transmission Date: 20161109
  Serious: No
  Sender: FDA-Public Use
  Company Number: US-APOTEX-2016AP011432

PATIENT
  Sex: Female

DRUGS (2)
  1. DICLOFENAC SODIUM TOPICAL SOLUTION 1.5% [Suspect]
     Active Substance: DICLOFENAC SODIUM
     Dosage: DROPS APPLIED ON HANDS
     Route: 061
     Dates: start: 20160815
  2. DICLOFENAC SODIUM TOPICAL SOLUTION 1.5% [Suspect]
     Active Substance: DICLOFENAC SODIUM
     Indication: OSTEOARTHRITIS
     Dosage: 40 DROPS, ON EACH KNEE
     Route: 061
     Dates: start: 20160813

REACTIONS (7)
  - Cough [Unknown]
  - Gait disturbance [Unknown]
  - Dyspnoea [Unknown]
  - Hyperaesthesia [Unknown]
  - Neck pain [Unknown]
  - Pain [Unknown]
  - Asthenia [Unknown]

NARRATIVE: CASE EVENT DATE: 20160815
